FAERS Safety Report 5839144-6 (Version None)
Quarter: 2008Q3

REPORT INFORMATION
  Report Type: 
  Country: None (occurrence: None)
  Receive Date: 20080808
  Receipt Date: 20080729
  Transmission Date: 20090109
  Serious: Yes (Other)
  Sender: FDA-Public Use
  Company Number: US-PFIZER INC-2008049655

PATIENT
  Sex: Female
  Weight: 71.7 kg

DRUGS (3)
  1. NEURONTIN [Suspect]
     Indication: SLEEP DISORDER
     Route: 048
     Dates: start: 20080324, end: 20080528
  2. NEURONTIN [Suspect]
     Indication: CERVICOBRACHIAL SYNDROME
  3. ANTIHYPERTENSIVES [Concomitant]

REACTIONS (6)
  - AMNESIA [None]
  - CONFUSIONAL STATE [None]
  - HYPERTENSION [None]
  - IMPAIRED DRIVING ABILITY [None]
  - NERVOUS SYSTEM DISORDER [None]
  - VISION BLURRED [None]
